FAERS Safety Report 6971945-3 (Version None)
Quarter: 2010Q3

REPORT INFORMATION
  Report Type: 
  Country: None (occurrence: None)
  Receive Date: 20100908
  Receipt Date: 20100908
  Transmission Date: 20110219
  Serious: No
  Sender: FDA-Public Use
  Company Number: None

PATIENT
  Age: 61 Year
  Sex: Female

DRUGS (1)
  1. LIDOCAINE 1% [Suspect]
     Indication: CARDIAC PACEMAKER INSERTION
     Dosage: LIDOCAINE 1% 40ML ONCE SUBCUTANEOUSLY
     Route: 058
     Dates: start: 20100722

REACTIONS (1)
  - PAIN [None]
